FAERS Safety Report 5789326-7 (Version None)
Quarter: 2008Q2

REPORT INFORMATION
  Report Type: 
  Country: None (occurrence: None)
  Receive Date: 20080626
  Receipt Date: 20080619
  Transmission Date: 20081010
  Serious: Yes (Hospitalization)
  Sender: FDA-Public Use
  Company Number: US-MERCK-0806USA07726

PATIENT
  Age: 9 Year
  Sex: Female

DRUGS (6)
  1. SINGULAIR [Suspect]
     Indication: ASTHMA
     Route: 048
     Dates: start: 20020801
  2. SINGULAIR [Suspect]
     Route: 048
     Dates: end: 20071001
  3. SINGULAIR [Suspect]
     Indication: RHINITIS ALLERGIC
     Route: 048
     Dates: start: 20020801
  4. SINGULAIR [Suspect]
     Route: 048
     Dates: end: 20071001
  5. ALBUTEROL [Concomitant]
     Route: 065
  6. PULMICORT-100 [Concomitant]
     Route: 065

REACTIONS (2)
  - DEPRESSION [None]
  - SUICIDAL IDEATION [None]
